FAERS Safety Report 21658529 (Version 2)
Quarter: 2024Q2

REPORT INFORMATION
  Report Type: Spontaneous
  Country: US (occurrence: US)
  Receive Date: 20221129
  Receipt Date: 20240613
  Transmission Date: 20240716
  Serious: Yes (Hospitalization)
  Sender: FDA-Public Use
  Company Number: US-002147023-NVSC2022US265818

PATIENT
  Sex: Male

DRUGS (1)
  1. FINGOLIMOD [Suspect]
     Active Substance: FINGOLIMOD
     Indication: Foetal exposure during pregnancy
     Dosage: MATERNAL DOSE AT EXPOSURE: UNKNOWN)
     Route: 064

REACTIONS (3)
  - Lymphopenia [Recovered/Resolved]
  - Thrombocytosis [Recovered/Resolved]
  - Foetal exposure during pregnancy [Unknown]
